FAERS Safety Report 5286342-9 (Version None)
Quarter: 2007Q2

REPORT INFORMATION
  Report Type: 
  Country: None (occurrence: None)
  Receive Date: 20070404
  Receipt Date: 20070330
  Transmission Date: 20071010
  Serious: No
  Sender: FDA-Public Use
  Company Number: 2006UW10826

PATIENT
  Age: 11405 Day
  Sex: Female
  Weight: 131.4 kg

DRUGS (8)
  1. SEROQUEL [Suspect]
     Indication: BIPOLAR I DISORDER
     Route: 048
     Dates: start: 20020901
  2. ZYPREXA [Suspect]
  3. ABILIFY [Concomitant]
     Dates: start: 20060101
  4. GEODON [Concomitant]
     Dates: start: 20020901
  5. TRAZADONEL [Concomitant]
  6. CELEXA [Concomitant]
  7. EFFEXOR [Concomitant]
  8. MARIJUANA [Concomitant]
     Dosage: 3 TIMES
     Dates: start: 20050101

REACTIONS (1)
  - DIABETES MELLITUS [None]
